FAERS Safety Report 4489793-5 (Version None)
Quarter: 2004Q4

REPORT INFORMATION
  Report Type: 
  Country: None (occurrence: None)
  Receive Date: 20041026
  Receipt Date: 20041014
  Transmission Date: 20050328
  Serious: Yes (Death)
  Sender: FDA-Public Use
  Company Number: T04-SWI-06911-01

PATIENT
  Age: 79 Year
  Sex: Female

DRUGS (12)
  1. MEMANTINE HCL [Suspect]
     Dosage: 15 MG QD PO
     Route: 048
     Dates: start: 20040513, end: 20040515
  2. MEMANTINE HCL [Suspect]
     Dosage: 10 MG QD PO
     Route: 048
     Dates: start: 20040505, end: 20040512
  3. MEMANTINE HCL [Suspect]
     Dosage: 5 MG QD PO
     Route: 048
     Dates: start: 20040428, end: 20040504
  4. ESCITALOPRAM OXALATE [Suspect]
     Dosage: 10 MG QD PO
     Route: 048
     Dates: start: 20040401, end: 20040515
  5. METOLAZONE [Suspect]
     Dates: end: 20040515
  6. KONAKION [Suspect]
     Dosage: 5 MG QD PO
     Route: 048
     Dates: start: 20040510, end: 20040515
  7. METOPROLOL SUCCINATE [Suspect]
     Dosage: 25 MG QD PO
     Route: 048
     Dates: end: 20040515
  8. DIGOXIN [Suspect]
     Dosage: 0.125 MG QD PO
     Route: 048
     Dates: end: 20040515
  9. SPASMO-URGENIN [Suspect]
     Dosage: 40 MG QD PO
     Route: 048
     Dates: start: 20040316, end: 20040515
  10. ASPIRIN [Suspect]
     Dosage: 100 MG QD PO
     Route: 048
     Dates: start: 20040311, end: 20040515
  11. TRAMADOL HCL [Suspect]
     Dosage: 50 MG QD PO
     Route: 048
     Dates: start: 20040422, end: 20040515
  12. ZYRTEC [Suspect]
     Dosage: 10 MG QD PO
     Route: 048
     Dates: start: 20040514, end: 20040515

REACTIONS (4)
  - ANAPHYLACTIC SHOCK [None]
  - DERMATITIS ALLERGIC [None]
  - EXANTHEM [None]
  - OXYGEN SATURATION DECREASED [None]
